FAERS Safety Report 4366863-3 (Version None)
Quarter: 2004Q2

REPORT INFORMATION
  Report Type: 
  Country: None (occurrence: None)
  Receive Date: 20040526
  Receipt Date: 20040526
  Transmission Date: 20050107
  Serious: No
  Sender: FDA-Public Use
  Company Number: None

PATIENT

DRUGS (1)
  1. ETHYL CHLORIDE SPRAY [Suspect]
     Dosage: SPRAY

REACTIONS (1)
  - MEDICATION ERROR [None]
